FAERS Safety Report 6295009 (Version 20)
Quarter: 2013Q4

REPORT INFORMATION
  Report Type: Spontaneous
  Country: US (occurrence: US)
  Receive Date: 20070424
  Receipt Date: 20131119
  Transmission Date: 20140711
  Serious: Yes (Other)
  Sender: FDA-Public Use
  Company Number: PHEH2007US05478

PATIENT
  Age: 57 Year
  Sex: Female
  Weight: 56 kg

DRUGS (22)
  1. ZOMETA [Suspect]
     Indication: OSTEOPENIA
     Route: 042
     Dates: start: 200207, end: 200705
  2. AREDIA [Suspect]
  3. FOSAMAX [Suspect]
     Indication: OSTEOPOROSIS
     Dosage: 10 MG
     Dates: start: 19970507
  4. FLUOXETINE [Concomitant]
     Dosage: 40 MG, QD
  5. MULTIVITAMINS [Concomitant]
  6. FISH OIL [Concomitant]
  7. EVISTA [Concomitant]
     Dosage: 60 MG, QD
     Dates: start: 200711
  8. CHANTIX [Concomitant]
  9. CALTRATE 600 + VITAMIN D [Concomitant]
     Dosage: 1 DF, BID
  10. CLONAZEPAM [Concomitant]
     Dosage: 0.5 MG, TID
  11. SPORANOX [Concomitant]
     Dosage: 100 MG, BID
  12. NYSTATIN [Concomitant]
  13. PROZAC [Concomitant]
     Dosage: 40 MG, QD
  14. AMBIEN [Concomitant]
  15. B COMPLEX [Concomitant]
  16. CENTRUM SILVER [Concomitant]
  17. ESTER-C [Concomitant]
  18. SYNTHROID [Concomitant]
  19. MIACALCIN [Concomitant]
  20. DEXA [Concomitant]
  21. BORON [Concomitant]
  22. ACTIVELLA [Concomitant]

REACTIONS (60)
  - Retinal degeneration [Unknown]
  - Retinal tear [Unknown]
  - Haematuria [Unknown]
  - Arthritis [Recovered/Resolved]
  - Dysuria [Unknown]
  - Rhinorrhoea [Unknown]
  - Hypothyroidism [Unknown]
  - Hypophosphatasia [Unknown]
  - Dyslipidaemia [Unknown]
  - Dysplasia [Unknown]
  - Hot flush [Unknown]
  - Libido decreased [Unknown]
  - Dermal cyst [Unknown]
  - Abscess [Unknown]
  - Cervical dysplasia [Unknown]
  - Actinic keratosis [Unknown]
  - Scab [Unknown]
  - Inflammation [Unknown]
  - Upper extremity mass [Unknown]
  - Stab wound [Unknown]
  - Vulvovaginal dryness [Unknown]
  - Large intestine polyp [Unknown]
  - Hyperplasia [Unknown]
  - Diverticulum [Unknown]
  - Neck mass [Unknown]
  - Bradycardia [Unknown]
  - Spinal osteoarthritis [Unknown]
  - Oropharyngeal pain [Unknown]
  - Lymphadenopathy [Unknown]
  - Ear discomfort [Unknown]
  - Pharyngitis [Unknown]
  - Pernicious anaemia [Unknown]
  - Cough [Unknown]
  - Osteonecrosis of jaw [Recovered/Resolved]
  - Pain [Unknown]
  - Injury [Unknown]
  - Impaired healing [Unknown]
  - Primary sequestrum [Unknown]
  - Fistula [Unknown]
  - Osteosclerosis [Unknown]
  - Tooth loss [Unknown]
  - Atrophy [Unknown]
  - Osteopenia [Unknown]
  - Anxiety [Recovered/Resolved]
  - Intervertebral disc protrusion [Unknown]
  - Neck pain [Unknown]
  - Muscle spasms [Unknown]
  - Cervical radiculopathy [Unknown]
  - Monoclonal gammopathy [Unknown]
  - Paraproteinaemia [Unknown]
  - Carpal tunnel syndrome [Unknown]
  - Pain in extremity [Unknown]
  - Hypoaesthesia [Unknown]
  - Paraesthesia [Unknown]
  - Implant site swelling [Recovered/Resolved]
  - Plasma cell myeloma [Unknown]
  - Haemorrhoids [Unknown]
  - Palpitations [Not Recovered/Not Resolved]
  - Anaemia [Unknown]
  - Chest pain [Unknown]
